FAERS Safety Report 4875669-8 (Version None)
Quarter: 2006Q1

REPORT INFORMATION
  Report Type: 
  Country: None (occurrence: None)
  Receive Date: 20060105
  Receipt Date: 20051224
  Transmission Date: 20060701
  Serious: Yes (Hospitalization)
  Sender: FDA-Public Use
  Company Number: GXKR2005FR02205

PATIENT
  Age: 73 Year
  Sex: Male

DRUGS (4)
  1. KETOPROFEN [Suspect]
     Indication: OSTEOARTHRITIS
     Dates: start: 20021129
  2. ROFECOXIB [Suspect]
     Indication: OSTEOARTHRITIS
     Dosage: 50 MG, QD
     Dates: start: 20030131, end: 20030101
  3. ROFECOXIB [Suspect]
     Indication: OSTEOARTHRITIS
     Dosage: 50 MG, QD
     Dates: start: 20030131, end: 20030101
  4. ACEBUTOLOL [Concomitant]

REACTIONS (1)
  - LEUKOCYTOCLASTIC VASCULITIS [None]
